FAERS Safety Report 11745711 (Version 1)
Quarter: 2015Q4

REPORT INFORMATION
  Report Type: Spontaneous
  Country: IT (occurrence: IT)
  Receive Date: 20151117
  Receipt Date: 20151117
  Transmission Date: 20160304
  Serious: Yes (Hospitalization)
  Sender: FDA-Public Use
  Company Number: IT-WATSON-2015-24330

PATIENT
  Age: 36 Year
  Sex: Male

DRUGS (6)
  1. LAROXYL [Suspect]
     Active Substance: AMITRIPTYLINE
     Indication: DRUG ABUSE
     Dosage: TO
     Route: 048
     Dates: start: 20151011, end: 20151011
  2. DEPAKIN [Concomitant]
     Active Substance: VALPROATE SODIUM
     Indication: PRODUCT USED FOR UNKNOWN INDICATION
     Dosage: UNK UNK, UNKNOWN
     Route: 065
  3. SUBOXONE [Concomitant]
     Active Substance: BUPRENORPHINE HYDROCHLORIDE\NALOXONE HYDROCHLORIDE
     Indication: PRODUCT USED FOR UNKNOWN INDICATION
     Dosage: 16 MG, UNKNOWN
     Route: 065
  4. GABAPENTIN. [Concomitant]
     Active Substance: GABAPENTIN
     Indication: PRODUCT USED FOR UNKNOWN INDICATION
     Dosage: 400 MG, UNKNOWN
     Route: 065
  5. RIVOTRIL [Suspect]
     Active Substance: CLONAZEPAM
     Indication: DRUG ABUSE
     Dosage: 10 ML, TOTAL
     Route: 048
     Dates: start: 20151011, end: 20151011
  6. SERTRALINE [Suspect]
     Active Substance: SERTRALINE HYDROCHLORIDE
     Indication: DRUG ABUSE
     Dosage: 15 DF, TOTAL
     Route: 048
     Dates: start: 20151011, end: 20151011

REACTIONS (3)
  - Drug abuse [Unknown]
  - Confusional state [Unknown]
  - Restlessness [Unknown]

NARRATIVE: CASE EVENT DATE: 20151011
